FAERS Safety Report 5115123-1 (Version None)
Quarter: 2006Q3

REPORT INFORMATION
  Report Type: 
  Country: None (occurrence: None)
  Receive Date: 20060922
  Receipt Date: 20060907
  Transmission Date: 20061208
  Serious: Yes (Other)
  Sender: FDA-Public Use
  Company Number: US-CVT-061790

PATIENT
  Age: 85 Year
  Sex: Female

DRUGS (10)
  1. RANEXA [Suspect]
     Indication: ANGINA PECTORIS
     Dosage: 500 MG, BID; ORAL (SEE IMAGE)
     Route: 048
     Dates: start: 20060701, end: 20060701
  2. RANEXA [Suspect]
     Indication: ANGINA PECTORIS
     Dosage: 500 MG, BID; ORAL (SEE IMAGE)
     Route: 048
     Dates: start: 20060801, end: 20060901
  3. LUCENTIS [Concomitant]
  4. VISUDYNE [Concomitant]
  5. SYNTHROID [Concomitant]
  6. MAXZIDE [Concomitant]
  7. COREG [Concomitant]
  8. AGGRENOX [Concomitant]
  9. POTASSIUM CHLORIDE [Concomitant]
  10. CLONOPIN [Concomitant]

REACTIONS (6)
  - DIZZINESS [None]
  - MACULAR DEGENERATION [None]
  - RETCHING [None]
  - SLEEP DISORDER [None]
  - SNEEZING [None]
  - THROAT IRRITATION [None]
